FAERS Safety Report 5227665-9 (Version None)
Quarter: 2007Q1

REPORT INFORMATION
  Report Type: 
  Country: None (occurrence: None)
  Receive Date: 20070202
  Receipt Date: 20070126
  Transmission Date: 20070707
  Serious: Yes (Death)
  Sender: FDA-Public Use
  Company Number: GB-ABBOTT-07P-167-0357330-00

PATIENT
  Age: 68 Year
  Sex: Male

DRUGS (11)
  1. RITONAVIR SOFT GELATIN CAPSULES [Suspect]
     Indication: HIV TEST POSITIVE
     Route: 051
  2. APTIVUS [Suspect]
     Indication: HIV TEST POSITIVE
     Route: 051
  3. FUZEON [Concomitant]
     Indication: HIV TEST POSITIVE
  4. LAMIVUDINE [Concomitant]
     Indication: HIV TEST POSITIVE
     Route: 051
  5. ITRACONAZOLE [Concomitant]
     Indication: HIV TEST POSITIVE
     Route: 051
  6. BACTRIM [Concomitant]
     Indication: HIV TEST POSITIVE
     Route: 051
  7. STAVUDINE [Concomitant]
     Indication: HIV TEST POSITIVE
     Route: 051
  8. BENZYDAMINE HYDROCHLORIDE [Concomitant]
     Indication: DRUG USE FOR UNKNOWN INDICATION
  9. COCAINE [Concomitant]
     Indication: DRUG USE FOR UNKNOWN INDICATION
     Route: 048
  10. MORPHINE SULFATE [Concomitant]
     Indication: DRUG USE FOR UNKNOWN INDICATION
     Route: 051
  11. ACETAMINOPHEN W/ CODEINE [Concomitant]
     Indication: DRUG USE FOR UNKNOWN INDICATION
     Route: 051

REACTIONS (2)
  - GASTRITIS HAEMORRHAGIC [None]
  - UPPER GASTROINTESTINAL HAEMORRHAGE [None]
